FAERS Safety Report 10258571 (Version 2)
Quarter: 2014Q3

REPORT INFORMATION
  Report Type: Spontaneous
  Country: FR (occurrence: FR)
  Receive Date: 20140625
  Receipt Date: 20140703
  Transmission Date: 20150326
  Serious: Yes (Hospitalization)
  Sender: FDA-Public Use
  Company Number: FR-B.I. PHARMACEUTICALS,INC./RIDGEFIELD-2014-BI-28050FF

PATIENT
  Age: 93 Year
  Sex: Male

DRUGS (10)
  1. DICODIN LP [Concomitant]
     Route: 065
  2. CEFTRIAXONE BASE [Concomitant]
     Active Substance: CEFTRIAXONE
     Route: 065
  3. LASILIX [Suspect]
     Active Substance: FUROSEMIDE
     Indication: HYPERTENSION
     Dosage: 60 MG
     Route: 048
  4. PRAXILENE [Concomitant]
     Active Substance: NAFRONYL
     Route: 048
  5. MUCOMYST [Concomitant]
     Active Substance: ACETYLCYSTEINE
     Route: 048
  6. INNOVAIR [Concomitant]
     Active Substance: BECLOMETHASONE DIPROPIONATE\FORMOTEROL
     Dosage: DOSE PER APPLICATION /STRENGTH: 100/6 MCG/DOSE
     Route: 055
  7. MICARDIS [Suspect]
     Active Substance: TELMISARTAN
     Indication: HYPERTENSION
     Dosage: 80 MG
     Route: 048
  8. INEXIUM [Concomitant]
     Active Substance: ESOMEPRAZOLE
     Dosage: 20 MG
     Route: 048
  9. STILNOX [Concomitant]
     Active Substance: ZOLPIDEM TARTRATE
     Route: 048
  10. CELESTENE [Concomitant]
     Active Substance: BETAMETHASONE
     Route: 048

REACTIONS (2)
  - Renal failure acute [Recovered/Resolved]
  - Dehydration [Recovered/Resolved]

NARRATIVE: CASE EVENT DATE: 20140214
